FAERS Safety Report 22769686 (Version 2)
Quarter: 2024Q1

REPORT INFORMATION
  Report Type: Spontaneous
  Country: US (occurrence: US)
  Receive Date: 20230801
  Receipt Date: 20240119
  Transmission Date: 20240410
  Serious: No
  Sender: FDA-Public Use
  Company Number: US-LEO Pharma-360980

PATIENT
  Age: 23 Year
  Sex: Female

DRUGS (8)
  1. AZELAIC ACID [Suspect]
     Active Substance: AZELAIC ACID
     Indication: Psoriasis
     Dosage: REASON LOT NO UNKNOWN: NOT PROVIDED.
  2. SKYRIZI [Suspect]
     Active Substance: RISANKIZUMAB-RZAA
     Indication: Product used for unknown indication
     Dosage: REASON LOT NO UNKNOWN: NOT ASKED.
  3. SPIRONOLACTONE [Suspect]
     Active Substance: SPIRONOLACTONE
     Indication: Psoriasis
  4. CLOBETASOL [Suspect]
     Active Substance: CLOBETASOL
     Indication: Psoriasis
  5. TRIAMCINOLONE [Suspect]
     Active Substance: TRIAMCINOLONE
     Indication: Psoriasis
  6. ADAPALENE [Suspect]
     Active Substance: ADAPALENE
     Indication: Psoriasis
  7. HYDROCORTISONE [Suspect]
     Active Substance: HYDROCORTISONE
     Indication: Psoriasis
  8. METFORMIN [Suspect]
     Active Substance: METFORMIN HYDROCHLORIDE
     Indication: Psoriasis

REACTIONS (2)
  - Psoriasis [Unknown]
  - Off label use [Unknown]
